FAERS Safety Report 10205119 (Version 1)
Quarter: 2014Q2

REPORT INFORMATION
  Report Type: Spontaneous
  Country: US (occurrence: US)
  Receive Date: 20140529
  Receipt Date: 20140529
  Transmission Date: 20141212
  Serious: No
  Sender: FDA-Public Use
  Company Number: US-BAYER-2014-069474

PATIENT
  Age: 81 Year
  Sex: Male
  Weight: 68.03 kg

DRUGS (8)
  1. ALKA-SELTZER ORIGINAL [Suspect]
     Indication: ANALGESIC THERAPY
     Dosage: UNK
     Route: 048
  2. ALEVE CAPLET [Suspect]
     Dosage: UNK
     Route: 048
  3. AMLODIPINE [Concomitant]
  4. ALPRAZOLAM [Concomitant]
     Indication: ANXIETY
  5. VITAMIN D3 [Concomitant]
  6. L-ARGININE HCL [Concomitant]
  7. LISINOPRIL [Concomitant]
  8. SAL DE UVAS PICOT [Concomitant]
     Indication: ANTACID THERAPY

REACTIONS (7)
  - Rash macular [Not Recovered/Not Resolved]
  - Contusion [Not Recovered/Not Resolved]
  - Pain [Not Recovered/Not Resolved]
  - Skin haemorrhage [Not Recovered/Not Resolved]
  - Skin atrophy [Not Recovered/Not Resolved]
  - Skin mass [Not Recovered/Not Resolved]
  - Incorrect drug administration duration [None]
